FAERS Safety Report 9832985 (Version 1)
Quarter: 2014Q1

REPORT INFORMATION
  Report Type: Spontaneous
  Country: IT (occurrence: IT)
  Receive Date: 20140121
  Receipt Date: 20140121
  Transmission Date: 20141002
  Serious: Yes (Hospitalization)
  Sender: FDA-Public Use
  Company Number: IT-B.I. PHARMACEUTICALS,INC./RIDGEFIELD-2014-BI-02359IT

PATIENT
  Age: 62 Year
  Sex: Male

DRUGS (8)
  1. PRADAXA [Suspect]
     Dosage: 300 MG
     Dates: start: 20130901, end: 20140109
  2. TAMSULOSIN HYDROCHLORIDE [Concomitant]
     Dosage: 1 ANZ
  3. TENORMIN [Concomitant]
     Dosage: 50 MG
  4. ALMARYTM [Concomitant]
     Dosage: 1 ANZ
  5. NEXIUM [Concomitant]
     Dosage: 1 ANZ
  6. APROVEL [Concomitant]
     Dosage: 1 ANZ
     Dates: start: 20140106, end: 20140109
  7. CARDIOASPIRIN [Concomitant]
     Dates: start: 20140106, end: 20140109
  8. CARDIO-ACETYL SALICILIC ACID [Concomitant]
     Dates: start: 201302

REACTIONS (1)
  - Ischaemic stroke [Recovered/Resolved]
